FAERS Safety Report 8250039-3 (Version None)
Quarter: 2012Q2

REPORT INFORMATION
  Report Type: 
  Country: None (occurrence: None)
  Receive Date: 20120402
  Receipt Date: 20120321
  Transmission Date: 20120825
  Serious: Yes (Other)
  Sender: FDA-Public Use
  Company Number: US-UCBSA-054109

PATIENT
  Age: 67 Year
  Sex: Female

DRUGS (1)
  1. CIMZIA [Suspect]
     Dosage: TOOK ONLY 4 INJECTIONS (ONE STARTER KIT)
     Route: 058

REACTIONS (1)
  - B-CELL LYMPHOMA [None]
